FAERS Safety Report 9452925 (Version 2)
Quarter: 2013Q3

REPORT INFORMATION
  Report Type: Report from Study
  Country: JP (occurrence: JP)
  Receive Date: 20130812
  Receipt Date: 20130916
  Transmission Date: 20140515
  Serious: Yes (Hospitalization)
  Sender: FDA-Public Use
  Company Number: JP-ROCHE-1223365

PATIENT
  Age: 79 Year
  Sex: Female

DRUGS (3)
  1. METHOXY POLYETHYLENE GLYCOL-EPOETIN BETA [Suspect]
     Indication: NEPHROGENIC ANAEMIA
     Route: 058
     Dates: start: 20121001, end: 20130520
  2. AMLODIPINE [Concomitant]
     Indication: HYPERTENSION
     Route: 048
  3. BLOPRESS [Concomitant]
     Indication: HYPERTENSION
     Route: 048

REACTIONS (4)
  - Influenza [Recovered/Resolved]
  - Hypertension [Recovering/Resolving]
  - Cardiac failure [Recovered/Resolved]
  - Renal failure [Recovered/Resolved]
